FAERS Safety Report 11602199 (Version 1)
Quarter: 2015Q4

REPORT INFORMATION
  Report Type: Spontaneous
  Country: US (occurrence: US)
  Receive Date: 20151006
  Receipt Date: 20151006
  Transmission Date: 20160304
  Serious: No
  Sender: FDA-Public Use
  Company Number: US-AMGEN-USASP2015034111

PATIENT
  Age: 53 Year
  Sex: Female
  Weight: 59.42 kg

DRUGS (4)
  1. OMEGA 3 FISH OIL                   /01334101/ [Concomitant]
  2. PROLIA [Suspect]
     Active Substance: DENOSUMAB
     Indication: PRODUCT USED FOR UNKNOWN INDICATION
     Dosage: 60 MG, UNK
     Route: 065
  3. MULTIVITAMIN                       /00097801/ [Concomitant]
     Active Substance: VITAMINS
  4. VITAMIN D3 [Concomitant]
     Active Substance: CHOLECALCIFEROL
     Dosage: 2000 UNIT, UNK

REACTIONS (3)
  - Rash generalised [Unknown]
  - Drug eruption [Recovering/Resolving]
  - Essential hypertension [Unknown]

NARRATIVE: CASE EVENT DATE: 201501
